FAERS Safety Report 20987541 (Version 1)
Quarter: 2022Q2

REPORT INFORMATION
  Report Type: Spontaneous
  Country: IT (occurrence: IT)
  Receive Date: 20220621
  Receipt Date: 20220621
  Transmission Date: 20220721
  Serious: Yes (Other)
  Sender: FDA-Public Use
  Company Number: None

PATIENT
  Age: 77 Year
  Sex: Male

DRUGS (3)
  1. CANGRELOR TETRASODIUM [Suspect]
     Active Substance: CANGRELOR TETRASODIUM
     Indication: Acute myocardial infarction
     Dosage: UNK
     Route: 040
  2. CANGRELOR TETRASODIUM [Suspect]
     Active Substance: CANGRELOR TETRASODIUM
     Dosage: UNK
     Route: 042
  3. TICAGRELOR [Suspect]
     Active Substance: TICAGRELOR
     Indication: Acute myocardial infarction
     Dosage: 2 DOSAGE FORM

REACTIONS (5)
  - Restlessness [Recovered/Resolved]
  - Drug interaction [Recovered/Resolved]
  - Dyspnoea [Recovered/Resolved]
  - Anxiety [Recovered/Resolved]
  - Off label use [Recovered/Resolved]
